FAERS Safety Report 8366178-2 (Version None)
Quarter: 2012Q2

REPORT INFORMATION
  Report Type: 
  Country: None (occurrence: None)
  Receive Date: 20120515
  Receipt Date: 20120430
  Transmission Date: 20120825
  Serious: Yes (Death)
  Sender: FDA-Public Use
  Company Number: 2012AT000229

PATIENT
  Age: 78 Year
  Sex: Male

DRUGS (8)
  1. PHENPROCOUMON [Concomitant]
  2. DABIGATRAN (DABIGATRAN) [Suspect]
     Indication: PRODUCT USED FOR UNKNOWN INDICATION
     Dosage: 110 MG, BID
  3. ENOXAPARIN [Concomitant]
  4. HYDROCHLOROTHIAZIDE [Concomitant]
  5. ALPROSTADIL [Suspect]
     Indication: PRODUCT USED FOR UNKNOWN INDICATION
     Dosage: 40 UG
  6. DALTEPARIN SODIUM [Suspect]
     Indication: PRODUCT USED FOR UNKNOWN INDICATION
     Dosage: 50000 IU, BID
  7. DIGOXIN [Concomitant]
  8. ENALAPRIL MALEATE [Concomitant]

REACTIONS (8)
  - PERIPHERAL EMBOLISM [None]
  - PAIN IN EXTREMITY [None]
  - BLOOD PRESSURE INCREASED [None]
  - COMA [None]
  - MYOCLONUS [None]
  - HYPOREFLEXIA [None]
  - HYPOTONIA [None]
  - BASILAR ARTERY OCCLUSION [None]
